FAERS Safety Report 19645771 (Version 1)
Quarter: 2021Q3

REPORT INFORMATION
  Report Type: Spontaneous
  Country: US (occurrence: US)
  Receive Date: 20210801
  Receipt Date: 20210801
  Transmission Date: 20211014
  Serious: Yes (Other)
  Sender: FDA-Public Use
  Company Number: None

PATIENT
  Age: 46 Year
  Sex: Female
  Weight: 108 kg

DRUGS (1)
  1. HYDROCODONE BITARTRATE AND ACETAMINOPHEN [Suspect]
     Active Substance: ACETAMINOPHEN\HYDROCODONE BITARTRATE
     Indication: PAIN
     Dosage: ?          QUANTITY:1 TABLET(S);?
     Route: 048
     Dates: start: 20090301

REACTIONS (9)
  - Nausea [None]
  - Product formulation issue [None]
  - Malaise [None]
  - Foreign body in throat [None]
  - Fatigue [None]
  - Product taste abnormal [None]
  - Somnolence [None]
  - Dizziness [None]
  - Inadequate analgesia [None]

NARRATIVE: CASE EVENT DATE: 20210801
